FAERS Safety Report 9306207 (Version 3)
Quarter: 2013Q3

REPORT INFORMATION
  Report Type: Report from Study
  Country: US (occurrence: US)
  Receive Date: 20130523
  Receipt Date: 20130821
  Transmission Date: 20140515
  Serious: Yes (Hospitalization, Other)
  Sender: FDA-Public Use
  Company Number: US-VERTEX PHARMACEUTICALS INC-2013-006134

PATIENT
  Age: 63 Year
  Sex: Male
  Weight: 88.9 kg

DRUGS (11)
  1. VX-950 (TELAPREVIR) [Suspect]
     Indication: HEPATITIS C
     Dosage: 750 MG, TID
     Route: 048
     Dates: start: 20130221, end: 20130516
  2. Z-PEGYLATED INTERFERON-2A [Suspect]
     Indication: HEPATITIS C
     Dosage: 1200 MG, UNK
     Route: 058
     Dates: start: 20130221
  3. Z-RIBAVIRIN [Suspect]
     Indication: HEPATITIS C
     Dosage: 1200 MG, BID
     Route: 048
     Dates: start: 20130221, end: 201305
  4. Z-RIBAVIRIN [Suspect]
     Dosage: 600 MG, UNK
     Dates: start: 201305
  5. BUPROPION [Concomitant]
     Indication: AFFECTIVE DISORDER
     Dosage: 150 MG, UNK
     Dates: start: 20121024
  6. ALBUTEROL [Concomitant]
     Indication: DYSPNOEA
     Dosage: 90 ?G, UNK
     Dates: start: 20121202
  7. ALBUTEROL W/IPRATROPIUM [Concomitant]
     Indication: DYSPNOEA
     Dosage: 0.5MG/3ML
     Dates: start: 20121202
  8. OMEPRAZOLE [Concomitant]
     Indication: PROPHYLAXIS
     Dosage: 20 MG, UNK
     Dates: start: 20130226
  9. HYDROCHLOROTHIAZIDE [Concomitant]
     Indication: HYPERTENSION
     Dosage: 25 MG, UNK
     Dates: start: 20130226
  10. LABETALOL [Concomitant]
     Indication: HYPERTENSION
     Dosage: 200 MG, UNK
     Dates: start: 20130305
  11. POTASSIUM CHLORIDE [Concomitant]
     Indication: HYPOKALAEMIA
     Dosage: 20 MEQ, UNK
     Dates: start: 20130312

REACTIONS (3)
  - Dehydration [Recovered/Resolved]
  - Hypotension [Recovered/Resolved]
  - Anaemia [Recovered/Resolved]
